FAERS Safety Report 6811057-2 (Version None)
Quarter: 2010Q2

REPORT INFORMATION
  Report Type: 
  Country: None (occurrence: None)
  Receive Date: 20100630
  Receipt Date: 20090218
  Transmission Date: 20101027
  Serious: No
  Sender: FDA-Public Use
  Company Number: US-PFIZER INC-2009172323

PATIENT
  Sex: Female
  Weight: 54.4 kg

DRUGS (7)
  1. ESTRING [Suspect]
     Indication: BLADDER PROLAPSE
     Dosage: UNK
  2. LORAZEPAM [Concomitant]
     Dosage: UNK
  3. DETROL [Concomitant]
     Dosage: UNK
  4. PREMARIN [Concomitant]
     Dosage: UNK
  5. NITROFURANTOIN [Concomitant]
     Dosage: UNK
  6. PRILOSEC [Concomitant]
     Dosage: UNK
  7. ZETIA [Concomitant]
     Dosage: UNK

REACTIONS (4)
  - CYSTITIS [None]
  - HYPERTENSION [None]
  - POLLAKIURIA [None]
  - VULVOVAGINAL DISCOMFORT [None]
